FAERS Safety Report 16632018 (Version 1)
Quarter: 2019Q3

REPORT INFORMATION
  Report Type: Spontaneous
  Country: US (occurrence: US)
  Receive Date: 20190725
  Receipt Date: 20190725
  Transmission Date: 20191004
  Serious: No
  Sender: FDA-Public Use
  Company Number: US-ABBVIE-19S-163-2654653-00

PATIENT
  Sex: Female

DRUGS (2)
  1. SYNTHROID [Suspect]
     Active Substance: LEVOTHYROXINE SODIUM
     Dosage: TAKE ONE TABLET OF 75 MCG ONE DAY AND ALTERNATE WITH THE FOLLOWING DAY OF 50 MCG.
     Route: 048
  2. SYNTHROID [Suspect]
     Active Substance: LEVOTHYROXINE SODIUM
     Indication: PRODUCT USED FOR UNKNOWN INDICATION
     Dosage: TAKE ONE TABLET OF 75 MCG ONE DAY AND ALTERNATE WITH THE FOLLOWING DAY OF 50 MCG.
     Route: 048

REACTIONS (4)
  - Underweight [Not Recovered/Not Resolved]
  - Sleep disorder [Unknown]
  - Blood thyroid stimulating hormone increased [Not Recovered/Not Resolved]
  - Therapeutic product effect variable [Not Recovered/Not Resolved]
